FAERS Safety Report 10268714 (Version 1)
Quarter: 2014Q2

REPORT INFORMATION
  Report Type: Spontaneous
  Country: US (occurrence: US)
  Receive Date: 20140630
  Receipt Date: 20140630
  Transmission Date: 20141212
  Serious: Yes (Other)
  Sender: FDA-Public Use
  Company Number: US-ACTAVIS-2014-13765

PATIENT
  Age: 73 Year
  Sex: Female
  Weight: 68 kg

DRUGS (3)
  1. DOXYCYCLINE HYCLATE (WATSON LABORATORIES) [Suspect]
     Indication: DENTAL DISORDER PROPHYLAXIS
     Dosage: 1 DF, BID
     Route: 048
     Dates: start: 20140615
  2. VERAPAMIL [Concomitant]
     Indication: HYPERTENSION
     Dosage: 80 MG, TID
     Route: 048
  3. VALIUM [Concomitant]
     Indication: ANXIETY
     Dosage: 5 MG, HALF TABLET
     Route: 048

REACTIONS (7)
  - Blood pressure increased [Recovering/Resolving]
  - Dizziness [Recovering/Resolving]
  - Abdominal discomfort [Recovering/Resolving]
  - Vision blurred [Recovering/Resolving]
  - Pruritus [Recovering/Resolving]
  - Anxiety [Recovering/Resolving]
  - Tremor [Recovering/Resolving]
